FAERS Safety Report 23999874 (Version 1)
Quarter: 2024Q2

REPORT INFORMATION
  Report Type: Spontaneous
  Country: US (occurrence: None)
  Receive Date: 20240620
  Receipt Date: 20240620
  Transmission Date: 20240716
  Serious: Yes (unspecified)
  Sender: FDA-Public Use
  Company Number: None

PATIENT
  Age: 81 Year
  Sex: Female

DRUGS (1)
  1. TRELEGY ELLIPTA [Suspect]
     Active Substance: FLUTICASONE FUROATE\UMECLIDINIUM BROMIDE\VILANTEROL TRIFENATATE
     Indication: Asthma
     Dosage: OTHER QUANTITY : 1 PUFF(S);?FREQUENCY : AT BEDTIME;?
     Route: 055
     Dates: start: 20240419, end: 20240508

REACTIONS (3)
  - Oropharyngeal pain [None]
  - Oral candidiasis [None]
  - Drug ineffective [None]

NARRATIVE: CASE EVENT DATE: 20240422
